FAERS Safety Report 15164887 (Version 1)
Quarter: 2018Q3

REPORT INFORMATION
  Report Type: Spontaneous
  Country: BR (occurrence: BR)
  Receive Date: 20180719
  Receipt Date: 20180719
  Transmission Date: 20181010
  Serious: Yes (Hospitalization)
  Sender: FDA-Public Use
  Company Number: BR-NAPPMUNDI-GBR-2018-0057650

PATIENT
  Age: 66 Year
  Sex: Female

DRUGS (2)
  1. OXYCONTIN [Suspect]
     Active Substance: OXYCODONE HYDROCHLORIDE
     Indication: PAIN
     Dosage: 1 TABLET, Q12H (STRENGHT 10MG)
     Route: 048
     Dates: start: 20180620, end: 20180706
  2. MORPHINE [Concomitant]
     Active Substance: MORPHINE
     Indication: PAIN
     Dosage: UNK, Q6H (STRENGHT 10MG)
     Route: 042

REACTIONS (2)
  - Abdominal pain [Unknown]
  - Sepsis [Unknown]

NARRATIVE: CASE EVENT DATE: 20180705
